FAERS Safety Report 16236358 (Version 1)
Quarter: 2019Q2

REPORT INFORMATION
  Report Type: Spontaneous
  Country: FR (occurrence: FR)
  Receive Date: 20190425
  Receipt Date: 20190425
  Transmission Date: 20190711
  Serious: Yes (Hospitalization)
  Sender: FDA-Public Use
  Company Number: FR-SA-2019SA113095

PATIENT
  Age: 74 Year
  Sex: Female
  Weight: 50 kg

DRUGS (3)
  1. ISONIAZID. [Suspect]
     Active Substance: ISONIAZID
     Indication: UVEITIS
     Route: 048
     Dates: start: 201901, end: 201903
  2. PIRILENE [Suspect]
     Active Substance: PYRAZINAMIDE
     Indication: UVEITIS
     Route: 048
     Dates: start: 201901, end: 201903
  3. RIFAMPICIN [Suspect]
     Active Substance: RIFAMPIN
     Indication: UVEITIS
     Route: 048
     Dates: start: 201901, end: 201903

REACTIONS (3)
  - Hallucination [Not Recovered/Not Resolved]
  - Behaviour disorder [Not Recovered/Not Resolved]
  - Confusional state [Not Recovered/Not Resolved]

NARRATIVE: CASE EVENT DATE: 201903
